FAERS Safety Report 17534581 (Version 1)
Quarter: 2020Q1

REPORT INFORMATION
  Report Type: Report from Study
  Country: AT (occurrence: AT)
  Receive Date: 20200312
  Receipt Date: 20200312
  Transmission Date: 20200409
  Serious: Yes (Other)
  Sender: FDA-Public Use
  Company Number: AT-MYLANLABS-2020M1026176

PATIENT
  Age: 54 Year
  Sex: Female
  Weight: 75 kg

DRUGS (15)
  1. KYTRIL [Concomitant]
     Active Substance: GRANISETRON HYDROCHLORIDE
     Dosage: ONGOING = NOT CHECKED
     Route: 065
     Dates: start: 20190628
  2. BEPANTHENE [Concomitant]
     Active Substance: DEXPANTHENOL
     Indication: ONYCHOLYSIS
     Dosage: UNK
     Route: 065
     Dates: start: 20180725
  3. CAPECITABINE. [Suspect]
     Active Substance: CAPECITABINE
     Indication: BREAST CANCER
     Dosage: 500 MILLIGRAM
     Route: 048
     Dates: start: 20191126, end: 20191218
  4. TAXOL [Suspect]
     Active Substance: PACLITAXEL
     Indication: HER-2 POSITIVE BREAST CANCER
     Dosage: 147.76 MILLIGRAM (WEEKLY RECENT DOSE ON 09/APR/2018)
     Route: 042
     Dates: start: 20180328
  5. PANTOLOC                           /01263201/ [Concomitant]
     Active Substance: PANTOPRAZOLE SODIUM
     Dosage: ONGOING = CHECKED
     Route: 065
     Dates: start: 20191011
  6. TRASTUZUMAB EMTANSINE [Suspect]
     Active Substance: ADO-TRASTUZUMAB EMTANSINE
     Indication: HER-2 POSITIVE BREAST CANCER
     Dosage: 230.4 MILLIGRAM, Q3W (DOSE ON 17/MAY/2019 MOST RECENT DOSE PRIOR TO THE EVENT: 28/JUN/2019)
     Route: 042
     Dates: start: 20190131
  7. NERATINIB [Suspect]
     Active Substance: NERATINIB
     Indication: BREAST CANCER
     Dosage: 1440 MILLIGRAM, QD
     Route: 048
     Dates: start: 20200108
  8. DEXAMETHASONE. [Concomitant]
     Active Substance: DEXAMETHASONE
     Dosage: UNK
     Route: 065
     Dates: start: 20190628, end: 20190830
  9. TRASTUZUMAB MYLAN [Suspect]
     Active Substance: TRASTUZUMAB
     Indication: HER-2 POSITIVE BREAST CANCER
     Dosage: MOST RECENT DOSE PRIOR TO THE EVENT: 26/JUN/2018
     Route: 042
     Dates: start: 20180328
  10. PERTUZUMAB. [Suspect]
     Active Substance: PERTUZUMAB
     Indication: HER-2 POSITIVE BREAST CANCER
     Dosage: 840 MILLIGRAM, Q3W (MOST RECENT DOSE PRIOR TO THE EVENT: 14/DEC/2018)
     Route: 042
     Dates: start: 20180328
  11. ABRAXANE [Suspect]
     Active Substance: PACLITAXEL
     Indication: HER-2 POSITIVE BREAST CANCER
     Dosage: 177.17 MILLIGRAM (DOSE ON 08/MAY/2018 MOST RECENT DOSE PRIOR TO THE EVENT: 07/DEC/2018)
     Route: 042
     Dates: start: 20180416
  12. NAVELBINE [Suspect]
     Active Substance: VINORELBINE TARTRATE
     Indication: HER-2 POSITIVE BREAST CANCER
     Dosage: 50 MICROGRAM (RECENT DOSE: 28/OCT/2019)
     Route: 048
     Dates: start: 20191011
  13. CAL D VITA [Concomitant]
     Dosage: ONGOING = CHECKED
     Route: 065
     Dates: start: 20190425
  14. BEPANTHEN EYE [Concomitant]
     Indication: CONJUNCTIVITIS
     Dosage: UNK
     Route: 065
     Dates: start: 20180619
  15. OCTENISEPT                         /00972101/ [Concomitant]
     Indication: ONYCHOLYSIS
     Dosage: UNK
     Route: 065
     Dates: start: 20180725

REACTIONS (1)
  - Breast cancer metastatic [Recovering/Resolving]

NARRATIVE: CASE EVENT DATE: 20190920
